FAERS Safety Report 4959197-7 (Version None)
Quarter: 2006Q1

REPORT INFORMATION
  Report Type: 
  Country: None (occurrence: None)
  Receive Date: 20060127
  Receipt Date: 20051116
  Transmission Date: 20060701
  Serious: Yes (Death, Hospitalization, Other)
  Sender: FDA-Public Use
  Company Number: 2005-US-01107

PATIENT
  Age: 39 Year
  Sex: Male

DRUGS (1)
  1. CLOZAPINE [Suspect]
     Indication: SCHIZOAFFECTIVE DISORDER
     Dosage: 800 MG, ORAL
     Route: 048
     Dates: start: 20010901, end: 20051001

REACTIONS (2)
  - CONVULSION [None]
  - PULMONARY EMBOLISM [None]
